FAERS Safety Report 17802999 (Version 1)
Quarter: 2020Q2

REPORT INFORMATION
  Report Type: Spontaneous
  Country: US (occurrence: US)
  Receive Date: 20200519
  Receipt Date: 20200519
  Transmission Date: 20200714
  Serious: No
  Sender: FDA-Public Use
  Company Number: US-TEVA-2020-US-1237605

PATIENT
  Age: 57 Year
  Sex: Female

DRUGS (2)
  1. METHYLPREDNISOLONE TEVA [Suspect]
     Active Substance: METHYLPREDNISOLONE
     Indication: OTORRHOEA
  2. METHYLPREDNISOLONE TEVA [Suspect]
     Active Substance: METHYLPREDNISOLONE
     Indication: EAR SWELLING
     Dosage: 4 MG
     Route: 065

REACTIONS (1)
  - Vertigo [Not Recovered/Not Resolved]
